FAERS Safety Report 9078393 (Version 1)
Quarter: 2013Q1

REPORT INFORMATION
  Report Type: Spontaneous
  Country: US (occurrence: US)
  Receive Date: 20130130
  Receipt Date: 20130130
  Transmission Date: 20140127
  Serious: No
  Sender: FDA-Public Use
  Company Number: US-ABBOTT-12R-163-0976475-00

PATIENT
  Age: 65 Year
  Sex: Female
  Weight: 107.14 kg

DRUGS (5)
  1. HUMIRA [Suspect]
     Indication: CROHN^S DISEASE
     Dates: start: 20120813, end: 20120813
  2. HUMIRA [Suspect]
     Dates: start: 20120827
  3. CARBATEOL [Concomitant]
     Indication: PRODUCT USED FOR UNKNOWN INDICATION
  4. FLEXICAN [Concomitant]
     Indication: PRODUCT USED FOR UNKNOWN INDICATION
  5. TRIBENZOR [Concomitant]
     Indication: PRODUCT USED FOR UNKNOWN INDICATION

REACTIONS (3)
  - Injection site pruritus [Recovered/Resolved]
  - Injection site urticaria [Recovered/Resolved]
  - Injection site pruritus [Recovered/Resolved]
